FAERS Safety Report 11218702 (Version 5)
Quarter: 2016Q3

REPORT INFORMATION
  Report Type: Report from Study
  Country: JP (occurrence: JP)
  Receive Date: 20150625
  Receipt Date: 20160929
  Transmission Date: 20161109
  Serious: Yes (Death, Hospitalization, Other)
  Sender: FDA-Public Use
  Company Number: JP-INCYTE CORPORATION-2015IN002744

PATIENT
  Age: 75 Year
  Sex: Female
  Weight: 53.5 kg

DRUGS (2)
  1. JAKAFI [Suspect]
     Active Substance: RUXOLITINIB
     Indication: MYELOFIBROSIS
     Dosage: 15 MG, BID
     Route: 048
     Dates: start: 20150520, end: 20150529
  2. RED BLOOD CELLS, CONCENTRATED [Suspect]
     Active Substance: HUMAN RED BLOOD CELL
     Indication: MYELOFIBROSIS
     Dosage: 2 IU, UNK
     Route: 065
     Dates: start: 20150513, end: 20150708

REACTIONS (5)
  - Upper gastrointestinal haemorrhage [Recovered/Resolved]
  - Pyelonephritis [Fatal]
  - Myelofibrosis [Fatal]
  - Cardiac failure [Recovering/Resolving]
  - Liver disorder [Not Recovered/Not Resolved]

NARRATIVE: CASE EVENT DATE: 201505
